FAERS Safety Report 8984723 (Version 1)
Quarter: 2012Q4

REPORT INFORMATION
  Report Type: Spontaneous
  Country: GB (occurrence: None)
  Receive Date: 20121217
  Receipt Date: 20121217
  Transmission Date: 20130627
  Serious: Yes (Other)
  Sender: FDA-Public Use
  Company Number: GER/UKI/12/0027017

PATIENT
  Age: 55 Year
  Sex: Male

DRUGS (6)
  1. AMLODIPINE (AMLODIPINE) [Suspect]
     Indication: BLOOD PRESSURE HIGH
  2. AMLODIPINE (AMLODIPINE) [Suspect]
  3. LOSARTAN [Suspect]
     Indication: DRUG USE FOR UNKNOWN INDICATION
  4. LERCANIDIPINE [Suspect]
     Indication: DRUG USE FOR UNKNOWN INDICATION
  5. RAMIPRIL (RAMIPRIL) [Suspect]
     Indication: DRUG USE FOR UNKNOWN INDICATION
  6. SIMVASTATIN (SIMVASTATIN) [Suspect]
     Indication: DRUG USE FOR UNKNOWN INDICATION

REACTIONS (19)
  - Confusional state [None]
  - Blood pressure increased [None]
  - Fatigue [None]
  - Dyspnoea [None]
  - Myalgia [None]
  - Throat irritation [None]
  - Osteoarthritis [None]
  - Dysstasia [None]
  - Gait disturbance [None]
  - Mental impairment [None]
  - Feeling abnormal [None]
  - Depressed mood [None]
  - Drug interaction [None]
  - Stress [None]
  - Depression [None]
  - Pain [None]
  - Nightmare [None]
  - Product substitution issue [None]
  - Product quality issue [None]
